FAERS Safety Report 4346875-6 (Version None)
Quarter: 2004Q1

REPORT INFORMATION
  Report Type: 
  Country: None (occurrence: None)
  Receive Date: 20040329
  Receipt Date: 20031210
  Transmission Date: 20041129
  Serious: No
  Sender: FDA-Public Use
  Company Number: USA031254322

PATIENT
  Age: 5 Year
  Sex: Male
  Weight: 22 kg

DRUGS (2)
  1. STRATTERA [Suspect]
     Indication: ATTENTION DEFICIT/HYPERACTIVITY DISORDER
     Dosage: 25 MG/DAY
     Dates: start: 20031031
  2. ZOLOFT [Concomitant]

REACTIONS (10)
  - AGGRESSION [None]
  - ANGER [None]
  - ANTISOCIAL BEHAVIOUR [None]
  - CRYING [None]
  - DRUG INTERACTION [None]
  - FATIGUE [None]
  - HYPERSOMNIA [None]
  - PALLOR [None]
  - SKIN DISCOLOURATION [None]
  - SOCIAL AVOIDANT BEHAVIOUR [None]
